FAERS Safety Report 6836443-6 (Version None)
Quarter: 2010Q3

REPORT INFORMATION
  Report Type: 
  Country: None (occurrence: None)
  Receive Date: 20100713
  Receipt Date: 20100701
  Transmission Date: 20110219
  Serious: Yes (Other)
  Sender: FDA-Public Use
  Company Number: US-BAYER-200938824NA

PATIENT
  Age: 29 Year
  Sex: Female
  Weight: 86 kg

DRUGS (9)
  1. YAZ [Suspect]
     Indication: CONTRACEPTION
     Route: 048
     Dates: start: 20080906, end: 20091027
  2. CIPROFLOXACIN [Concomitant]
     Route: 065
     Dates: start: 20090101
  3. VANDAZOLE [Concomitant]
     Route: 067
     Dates: start: 20090101
  4. ASCORBIC ACID [Concomitant]
     Route: 065
     Dates: start: 20000101, end: 20100101
  5. IBUPROFEN [Concomitant]
     Route: 065
     Dates: start: 20000101, end: 20100101
  6. CENTRUM [Concomitant]
     Route: 065
  7. FLUCONAZOLE [Concomitant]
     Route: 065
     Dates: start: 20090101
  8. OXYCODONE HCL [Concomitant]
     Route: 065
     Dates: start: 20090101
  9. PRILOSEC [Concomitant]
     Route: 065

REACTIONS (10)
  - ABDOMINAL DISCOMFORT [None]
  - ABDOMINAL PAIN UPPER [None]
  - CHOLELITHIASIS [None]
  - COUGH [None]
  - DYSPEPSIA [None]
  - DYSPNOEA [None]
  - INCREASED UPPER AIRWAY SECRETION [None]
  - NAUSEA [None]
  - PHARYNGEAL ERYTHEMA [None]
  - VOMITING [None]
